FAERS Safety Report 21662283 (Version 1)
Quarter: 2022Q4

REPORT INFORMATION
  Report Type: Spontaneous
  Country: HR (occurrence: None)
  Receive Date: 20221130
  Receipt Date: 20221130
  Transmission Date: 20230113
  Serious: Yes (Other)
  Sender: FDA-Public Use
  Company Number: HR-ROCHE-3226538

PATIENT
  Age: 5 Year
  Sex: Male
  Weight: 20 kg

DRUGS (3)
  1. RIVOTRIL [Suspect]
     Active Substance: CLONAZEPAM
     Indication: Epilepsy
     Dosage: DOSE:1.5MG IN 0.5 DAY.?DOSAGE INFORMATION: 1.5-0-1.5
     Route: 048
     Dates: start: 20220801
  2. LEVETIRACETAM [Suspect]
     Active Substance: LEVETIRACETAM
     Indication: Epilepsy
     Dosage: DOSE: 5 ML IN 0.5 DAY?DOSAGE INFORMATION: 5-0-5
     Route: 048
     Dates: start: 20220815
  3. PHENOBARBITAL [Concomitant]
     Active Substance: PHENOBARBITAL
     Indication: Epilepsy
     Dosage: DOSE:50 MILLIGRAM IN 0.5 DAY,?DOSAGE INFORMATION: 50-0-50
     Route: 048
     Dates: start: 20220901

REACTIONS (3)
  - Intentional self-injury [Recovering/Resolving]
  - Aggression [Recovering/Resolving]
  - Speech disorder [Recovering/Resolving]

NARRATIVE: CASE EVENT DATE: 20220815
